FAERS Safety Report 9727672 (Version 1)
Quarter: 2013Q4

REPORT INFORMATION
  Report Type: Spontaneous
  Country: US (occurrence: US)
  Receive Date: 20131203
  Receipt Date: 20131203
  Transmission Date: 20140711
  Serious: No
  Sender: FDA-Public Use
  Company Number: US-009507513-1312USA001287

PATIENT
  Age: 45 Year
  Sex: Female

DRUGS (1)
  1. CLARITIN-D [Suspect]
     Indication: SINUS DISORDER
     Dosage: UNK, UNKNOWN
     Route: 048

REACTIONS (2)
  - Anxiety [Unknown]
  - Drug effect decreased [Unknown]
